FAERS Safety Report 14226377 (Version 1)
Quarter: 2017Q4

REPORT INFORMATION
  Report Type: Report from Study
  Country: US (occurrence: US)
  Receive Date: 20171127
  Receipt Date: 20171127
  Transmission Date: 20180321
  Serious: Yes (Hospitalization)
  Sender: FDA-Public Use
  Company Number: US-BAYER-2017-191371

PATIENT
  Age: 68 Year
  Sex: Male

DRUGS (3)
  1. NEXAVAR [Suspect]
     Active Substance: SORAFENIB
     Indication: HEPATOCELLULAR CARCINOMA
     Dosage: 200 MG, QD
     Route: 048
     Dates: start: 20171001, end: 201710
  2. NEXAVAR [Suspect]
     Active Substance: SORAFENIB
     Indication: HEPATOCELLULAR CARCINOMA
     Dosage: 400 MG, BID
     Route: 048
     Dates: start: 20170919, end: 2017
  3. NEXAVAR [Suspect]
     Active Substance: SORAFENIB
     Indication: HEPATOCELLULAR CARCINOMA
     Dosage: 400 MG, BID
     Route: 048
     Dates: start: 201710

REACTIONS (20)
  - Pallor [None]
  - Tremor [None]
  - Hypertension [None]
  - Epistaxis [None]
  - Adverse event [None]
  - Tumour marker increased [None]
  - Blood glucose decreased [None]
  - Skin exfoliation [None]
  - Pain in extremity [None]
  - Asthenia [None]
  - Blood pressure increased [None]
  - Blister [None]
  - Erythema [None]
  - Hypertension [None]
  - Headache [None]
  - Loss of personal independence in daily activities [None]
  - Mental status changes [None]
  - Fatigue [None]
  - Large intestine polyp [None]
  - Haemoglobin decreased [None]

NARRATIVE: CASE EVENT DATE: 201710
